FAERS Safety Report 21435117 (Version 2)
Quarter: 2022Q4

REPORT INFORMATION
  Report Type: Spontaneous
  Country: IN (occurrence: IN)
  Receive Date: 20221010
  Receipt Date: 20221024
  Transmission Date: 20230112
  Serious: Yes (Life-Threatening, Hospitalization, Other)
  Sender: FDA-Public Use
  Company Number: IN-BAXTER-2022BAX021176

PATIENT
  Age: 45 Year
  Sex: Male
  Weight: 65 kg

DRUGS (13)
  1. PROPOFOL [Suspect]
     Active Substance: PROPOFOL
     Indication: Induction of anaesthesia
     Dosage: 140 MG
     Route: 065
  2. ATRACURIUM BESYLATE [Suspect]
     Active Substance: ATRACURIUM BESYLATE
     Indication: Maintenance of anaesthesia
     Dosage: INTERMITTENT BOLUSES, 10 MG
     Route: 065
  3. MIDAZOLAM [Suspect]
     Active Substance: MIDAZOLAM
     Indication: Premedication
     Dosage: 1 MG
     Route: 042
  4. SEVOFLURANE [Suspect]
     Active Substance: SEVOFLURANE
     Indication: Maintenance of anaesthesia
     Dosage: 2% SEVOFLURANE IN 50% AIR/OXYGEN MIXTURE
     Route: 065
  5. SEVOFLURANE [Suspect]
     Active Substance: SEVOFLURANE
     Dosage: 1 - 2% WAS USED DURING THE INTRAOP
     Route: 065
  6. ONDANSETRON [Suspect]
     Active Substance: ONDANSETRON
     Indication: Premedication
     Dosage: 4 MG
     Route: 042
  7. ONDANSETRON [Suspect]
     Active Substance: ONDANSETRON
     Indication: Induction of anaesthesia
  8. FENTANYL [Suspect]
     Active Substance: FENTANYL
     Indication: Premedication
     Dosage: 100 UG
     Route: 042
  9. FENTANYL [Suspect]
     Active Substance: FENTANYL
     Indication: Maintenance of anaesthesia
     Dosage: INTERMITTENT BOLUSES OF 40 UG
     Route: 065
  10. LIDOCAINE HYDROCHLORIDE [Suspect]
     Active Substance: LIDOCAINE HYDROCHLORIDE
     Indication: Premedication
     Dosage: 90 MG; PRESERVATIVE FREE
     Route: 042
  11. SUCCINYLCHOLINE [Suspect]
     Active Substance: SUCCINYLCHOLINE
     Indication: Neuromuscular blockade
     Dosage: 100 MG
     Route: 042
  12. SUCCINYLCHOLINE [Suspect]
     Active Substance: SUCCINYLCHOLINE
     Indication: Induction of anaesthesia
  13. OXYGEN [Suspect]
     Active Substance: OXYGEN
     Indication: Maintenance of anaesthesia
     Route: 065

REACTIONS (7)
  - Torsade de pointes [Recovered/Resolved]
  - Cardiac arrest [Recovered/Resolved]
  - Stress cardiomyopathy [Recovered/Resolved]
  - Ventricular tachyarrhythmia [Recovered/Resolved]
  - Ventricular fibrillation [Recovered/Resolved]
  - Electrocardiogram ST segment elevation [Recovered/Resolved]
  - Ejection fraction decreased [Recovered/Resolved]
